FAERS Safety Report 6454614-8 (Version None)
Quarter: 2009Q4

REPORT INFORMATION
  Report Type: 
  Country: None (occurrence: None)
  Receive Date: 20091118
  Receipt Date: 20091107
  Transmission Date: 20100525
  Serious: Yes (Hospitalization)
  Sender: FDA-Public Use
  Company Number: 2009AP004506

PATIENT
  Age: 55 Year
  Sex: Male

DRUGS (12)
  1. FLUOXETINE HYDROCHLORIDE [Suspect]
     Dosage: 20 MG;QD
  2. DESIPRAMINE [Concomitant]
  3. PHENAZOPYRIDINE [Concomitant]
  4. OXYCODONE HCL [Concomitant]
  5. PREDNISONE [Concomitant]
  6. LEVOTHYROXINE SODIUM [Concomitant]
  7. OMEPRAZOLE [Concomitant]
  8. ENOXAPARIN SODIUM [Concomitant]
  9. METRONIDAZOLE [Concomitant]
  10. DOCUSATE CALCIUM [Concomitant]
  11. TESTOSTERONE [Concomitant]
  12. GLUCOCORTICOIDS [Concomitant]

REACTIONS (17)
  - ABDOMINAL PAIN [None]
  - ADRENAL INSUFFICIENCY [None]
  - COLITIS [None]
  - CONDITION AGGRAVATED [None]
  - CONFUSIONAL STATE [None]
  - DECREASED APPETITE [None]
  - DEPRESSION [None]
  - DIZZINESS [None]
  - FATIGUE [None]
  - HEADACHE [None]
  - HYPONATRAEMIA [None]
  - HYPOPITUITARISM [None]
  - LIBIDO DECREASED [None]
  - MYALGIA [None]
  - SUICIDAL IDEATION [None]
  - URINARY TRACT INFECTION [None]
  - WEIGHT DECREASED [None]
